FAERS Safety Report 9729951 (Version 2)
Quarter: 2013Q4

REPORT INFORMATION
  Report Type: Spontaneous
  Country: IT (occurrence: None)
  Receive Date: 20131203
  Receipt Date: 20131209
  Transmission Date: 20140711
  Serious: Yes (Other)
  Sender: FDA-Public Use
  Company Number: KAD201311-001507

PATIENT
  Sex: Male

DRUGS (2)
  1. RIBAVIRIN [Suspect]
     Indication: CHRONIC HEPATITIS C
  2. PEGINTERFERON ALFA-2A [Suspect]
     Indication: CHRONIC HEPATITIS C

REACTIONS (9)
  - Bone marrow toxicity [None]
  - Hepatic failure [None]
  - Disease progression [None]
  - Liver transplant [None]
  - Hepatitis chronic persistent [None]
  - Portal hypertension [None]
  - Hypersplenism [None]
  - Chronic hepatitis [None]
  - Hepatic cirrhosis [None]
